FAERS Safety Report 12876304 (Version 1)
Quarter: 2016Q4

REPORT INFORMATION
  Report Type: Spontaneous
  Country: NL (occurrence: NL)
  Receive Date: 20161024
  Receipt Date: 20161024
  Transmission Date: 20170207
  Serious: Yes (Other)
  Sender: FDA-Public Use
  Company Number: NL-AUROBINDO-AUR-APL-2016-13006

PATIENT
  Age: 53 Year
  Sex: Female

DRUGS (1)
  1. PREDNISONE. [Suspect]
     Active Substance: PREDNISONE
     Indication: SYSTEMIC LUPUS ERYTHEMATOSUS
     Dosage: 30-80 MG
     Route: 065

REACTIONS (7)
  - Skin lesion [Unknown]
  - Systemic lupus erythematosus [Unknown]
  - Histoplasmosis disseminated [Unknown]
  - Fatigue [Unknown]
  - Pyrexia [Unknown]
  - Confusional state [Unknown]
  - Jaundice [Unknown]
